FAERS Safety Report 7378384-4 (Version None)
Quarter: 2011Q1

REPORT INFORMATION
  Report Type: 
  Country: None (occurrence: None)
  Receive Date: 20110317
  Receipt Date: 20110307
  Transmission Date: 20110831
  Serious: Yes (Hospitalization, Other)
  Sender: FDA-Public Use
  Company Number: 028872

PATIENT
  Sex: Male
  Weight: 94.1 kg

DRUGS (2)
  1. MERCAPTOPURINE [Concomitant]
  2. CIMZIA [Suspect]
     Indication: CROHN'S DISEASE
     Dosage: 400 MG 1X /MONTH, SUBCUTANEOUS
     Route: 058
     Dates: start: 20091113

REACTIONS (1)
  - METASTATIC MALIGNANT MELANOMA [None]
